FAERS Safety Report 9573763 (Version 2)
Quarter: 2013Q4

REPORT INFORMATION
  Report Type: Spontaneous
  Country: CH (occurrence: CH)
  Receive Date: 20131001
  Receipt Date: 20131021
  Transmission Date: 20140711
  Serious: Yes (Hospitalization, Other)
  Sender: FDA-Public Use
  Company Number: CH-PFIZER INC-2013275259

PATIENT
  Age: 82 Year
  Sex: Male

DRUGS (6)
  1. SALAZOPYRIN [Suspect]
     Indication: PSORIATIC ARTHROPATHY
     Dosage: 500 MG, 2X/DAY
     Route: 048
     Dates: end: 20130627
  2. NOVALGIN [Suspect]
     Indication: PAIN
     Dosage: 500 MG, 2X/DAY
     Route: 048
     Dates: start: 20130419, end: 20130627
  3. ASPIRIN [Concomitant]
     Dosage: 100 MG, DAILY
     Route: 048
  4. SPIRICORT [Concomitant]
     Dosage: 10 MG, DAILY
     Route: 048
  5. ATACAND [Concomitant]
     Dosage: 16 MG, DAILY
     Route: 048
  6. CALCIUM D3 [Concomitant]
     Dosage: 1 DF, DAILY
     Route: 048

REACTIONS (2)
  - Agranulocytosis [Recovered/Resolved]
  - Febrile neutropenia [Recovered/Resolved]
